FAERS Safety Report 5204010-6 (Version None)
Quarter: 2007Q1

REPORT INFORMATION
  Report Type: 
  Country: None (occurrence: None)
  Receive Date: 20070110
  Receipt Date: 20051115
  Transmission Date: 20070707
  Serious: Yes (Hospitalization)
  Sender: FDA-Public Use
  Company Number: US-BRISTOL-MYERS SQUIBB COMPANY-12711719

PATIENT
  Age: 34 Year
  Sex: Male
  Weight: 93 kg

DRUGS (2)
  1. ABILIFY [Suspect]
     Route: 048
     Dates: start: 20040922
  2. LEXAPRO [Concomitant]
     Dates: start: 20030401

REACTIONS (8)
  - BRADYCARDIA [None]
  - CARDIAC ARREST [None]
  - CHILLS [None]
  - DIZZINESS [None]
  - EXTRASYSTOLES [None]
  - LOSS OF CONSCIOUSNESS [None]
  - SINUS ARRHYTHMIA [None]
  - SYNCOPE [None]
